FAERS Safety Report 20729417 (Version 1)
Quarter: 2022Q2

REPORT INFORMATION
  Report Type: Spontaneous
  Country: GB (occurrence: GB)
  Receive Date: 20220420
  Receipt Date: 20220420
  Transmission Date: 20220721
  Serious: Yes (Other)
  Sender: FDA-Public Use
  Company Number: None

PATIENT
  Age: 89 Year
  Sex: Female
  Weight: 70 kg

DRUGS (17)
  1. LISINOPRIL [Suspect]
     Active Substance: LISINOPRIL
     Indication: Product used for unknown indication
     Dates: start: 20220407
  2. ADCAL [Concomitant]
     Dates: start: 20210325
  3. AMILORIDE HYDROCHLORIDE [Concomitant]
     Active Substance: AMILORIDE HYDROCHLORIDE
     Dosage: MORNING
     Dates: start: 20210325
  4. AMLODIPINE [Concomitant]
     Active Substance: AMLODIPINE BESYLATE
     Dates: start: 20210325
  5. AMOXICILLIN [Concomitant]
     Active Substance: AMOXICILLIN
     Dates: start: 20220407
  6. BISOPROLOL [Concomitant]
     Active Substance: BISOPROLOL
     Dates: start: 20210325
  7. CITALOPRAM [Concomitant]
     Active Substance: CITALOPRAM HYDROBROMIDE
     Dates: start: 20210325, end: 20220128
  8. DENOSUMAB [Concomitant]
     Active Substance: DENOSUMAB
     Dosage: USE AS DIRECTED
     Dates: start: 20210712
  9. MINERAL OIL\PETROLATUM\WAX, EMULSIFYING [Concomitant]
     Active Substance: MINERAL OIL\PETROLATUM\WAX, EMULSIFYING
     Dosage: USE AS DIRECTED
     Dates: start: 20210325
  10. ESOMEPRAZOLE [Concomitant]
     Active Substance: ESOMEPRAZOLE
     Dates: start: 20211206
  11. FLUTICASONE [Concomitant]
     Active Substance: FLUTICASONE
     Dates: start: 20210325
  12. BECLOMETHASONE\FORMOTEROL [Concomitant]
     Active Substance: BECLOMETHASONE\FORMOTEROL
     Dosage: PUFFS
     Dates: start: 20210325
  13. FUROSEMIDE [Concomitant]
     Active Substance: FUROSEMIDE
     Dosage: MORNING
     Dates: start: 20210325
  14. MIRTAZAPINE [Concomitant]
     Active Substance: MIRTAZAPINE
     Dosage: AT NIGHT
     Dates: start: 20220128
  15. ACETAMINOPHEN [Concomitant]
     Active Substance: ACETAMINOPHEN
     Dosage: AS REQ
     Dates: start: 20210325
  16. ALBUTEROL [Concomitant]
     Active Substance: ALBUTEROL
     Dosage: AS REQ
     Dates: start: 20210325
  17. ZOPICLONE [Concomitant]
     Active Substance: ZOPICLONE
     Dosage: AT NIGHT
     Dates: start: 20210809, end: 20220128

REACTIONS (1)
  - Drug hypersensitivity [Unknown]

NARRATIVE: CASE EVENT DATE: 20220407
